FAERS Safety Report 13479759 (Version 3)
Quarter: 2017Q2

REPORT INFORMATION
  Report Type: Report from Study
  Country: TW (occurrence: TW)
  Receive Date: 20170425
  Receipt Date: 20170504
  Transmission Date: 20170830
  Serious: Yes (Death)
  Sender: FDA-Public Use
  Company Number: TW-EISAI MEDICAL RESEARCH-EC-2017-027010

PATIENT
  Age: 35 Year
  Sex: Male
  Weight: 76 kg

DRUGS (14)
  1. OXCARBAZEPINE. [Concomitant]
     Active Substance: OXCARBAZEPINE
  2. ZONISAMIDE. [Concomitant]
     Active Substance: ZONISAMIDE
  3. PHENOBARBITAL. [Concomitant]
     Active Substance: PHENOBARBITAL
  4. BETAMETHASONE OINTMENT [Concomitant]
  5. FYCOMPA [Suspect]
     Active Substance: PERAMPANEL
     Route: 048
     Dates: start: 20160526, end: 20170311
  6. TOPIRAMATE. [Concomitant]
     Active Substance: TOPIRAMATE
  7. CLINDAMYCIN PHOS.GEL 1% [Concomitant]
  8. COTRIMOXAZOLE [Concomitant]
     Active Substance: SULFAMETHOXAZOLE\TRIMETHOPRIM
  9. CLOBAZAM [Concomitant]
     Active Substance: CLOBAZAM
  10. FEXOFENADINE [Concomitant]
     Active Substance: FEXOFENADINE\FEXOFENADINE HYDROCHLORIDE
  11. ADAPALENE CREAM [Concomitant]
  12. FYCOMPA [Suspect]
     Active Substance: PERAMPANEL
     Indication: PARTIAL SEIZURES
     Route: 048
     Dates: start: 20160428, end: 20160511
  13. FYCOMPA [Suspect]
     Active Substance: PERAMPANEL
     Route: 048
     Dates: start: 20160512, end: 20160525
  14. DOXEPIN 5% CREAM [Concomitant]

REACTIONS (1)
  - Drowning [Fatal]

NARRATIVE: CASE EVENT DATE: 20170312
